FAERS Safety Report 20448027 (Version 1)
Quarter: 2022Q1

REPORT INFORMATION
  Report Type: Spontaneous
  Country: FR (occurrence: FR)
  Receive Date: 20220209
  Receipt Date: 20220209
  Transmission Date: 20220423
  Serious: Yes (Other)
  Sender: FDA-Public Use
  Company Number: FR-AFSSAPS-PO20220036

PATIENT
  Age: 73 Year
  Sex: Female

DRUGS (3)
  1. PAROXETINE [Suspect]
     Active Substance: PAROXETINE
     Indication: Bipolar disorder
     Dosage: 40 MILLIGRAM, UNK
     Route: 048
  2. MIRTAZAPINE [Suspect]
     Active Substance: MIRTAZAPINE
     Indication: Bipolar disorder
     Dosage: 30 MILLIGRAM, UNK
     Route: 048
  3. VALPROMIDE [Suspect]
     Active Substance: VALPROMIDE
     Indication: Bipolar disorder
     Dosage: 1500 MILLIGRAM, UNK
     Route: 048

REACTIONS (1)
  - Parkinsonism [Unknown]

NARRATIVE: CASE EVENT DATE: 20210601
